FAERS Safety Report 9465317 (Version 1)
Quarter: 2013Q3

REPORT INFORMATION
  Report Type: Spontaneous
  Country: US (occurrence: US)
  Receive Date: 20130820
  Receipt Date: 20130820
  Transmission Date: 20140515
  Serious: Yes (Hospitalization)
  Sender: FDA-Public Use
  Company Number: US-JNJFOC-20130803449

PATIENT
  Age: 81 Year
  Sex: Male
  Weight: 117.94 kg

DRUGS (6)
  1. TYLENOL PM EXTRA STRENGTH GELTAB [Suspect]
     Indication: SLEEP DISORDER THERAPY
     Dosage: BEFORE BED
     Route: 065
  2. METOPROLOL [Concomitant]
     Indication: BLOOD PRESSURE
     Route: 065
  3. MOVICOL [Concomitant]
     Indication: PRODUCT USED FOR UNKNOWN INDICATION
     Route: 065
  4. ASPIRIN [Concomitant]
     Indication: CARDIAC DISORDER
     Route: 065
  5. FLOMAX [Concomitant]
     Indication: PROSTATIC DISORDER
     Route: 065
  6. METFORMIN [Concomitant]
     Indication: DIABETES MELLITUS
     Route: 065

REACTIONS (3)
  - Expired drug administered [Unknown]
  - Off label use [Unknown]
  - Rash pruritic [Unknown]
